FAERS Safety Report 19374644 (Version 3)
Quarter: 2021Q2

REPORT INFORMATION
  Report Type: Spontaneous
  Country: US (occurrence: US)
  Receive Date: 20210604
  Receipt Date: 20210615
  Transmission Date: 20210717
  Serious: Yes (Hospitalization)
  Sender: FDA-Public Use
  Company Number: US-UNITED THERAPEUTICS-UNT-2021-010195

PATIENT
  Age: 58 Year
  Sex: Female

DRUGS (3)
  1. REMODULIN [Suspect]
     Active Substance: TREPROSTINIL
     Indication: PULMONARY ARTERIAL HYPERTENSION
     Dosage: UNK, CONTINUING
     Route: 058
     Dates: start: 202011
  2. REMODULIN [Suspect]
     Active Substance: TREPROSTINIL
     Dosage: 0.0495 ?G/KG, CONTINUING
     Route: 058
  3. REMODULIN [Suspect]
     Active Substance: TREPROSTINIL
     Dosage: UNK, CONTINUING
     Route: 058
     Dates: start: 20210402

REACTIONS (7)
  - Diarrhoea [Unknown]
  - Dehydration [Unknown]
  - Nasal congestion [Unknown]
  - Nausea [Unknown]
  - Upper respiratory tract infection [Unknown]
  - Respiratory tract congestion [Unknown]
  - Vomiting [Unknown]

NARRATIVE: CASE EVENT DATE: 20210531
